FAERS Safety Report 20863545 (Version 1)
Quarter: 2022Q2

REPORT INFORMATION
  Report Type: Spontaneous
  Country: US (occurrence: US)
  Receive Date: 20220523
  Receipt Date: 20220523
  Transmission Date: 20220720
  Serious: Yes (Other)
  Sender: FDA-Public Use
  Company Number: US-TEVA-2022-US-2037426

PATIENT
  Sex: Male

DRUGS (1)
  1. DIAMOX SEQUELS [Suspect]
     Active Substance: ACETAZOLAMIDE
     Indication: Head discomfort
     Route: 048

REACTIONS (1)
  - Labyrinthine fistula [Unknown]
